FAERS Safety Report 8044402-3 (Version None)
Quarter: 2012Q1

REPORT INFORMATION
  Report Type: 
  Country: None (occurrence: None)
  Receive Date: 20120113
  Receipt Date: 20120103
  Transmission Date: 20120608
  Serious: Yes (Death)
  Sender: FDA-Public Use
  Company Number: US-SHIONOGI, INC-2012000025

PATIENT
  Age: 56 Year
  Sex: Female

DRUGS (5)
  1. BUPRENORPHINE HCL [Suspect]
     Dosage: UNK
  2. LAMOTRIGINE [Suspect]
     Dosage: UNK
  3. NAPROXEN [Suspect]
     Dosage: UNK
  4. SALICYLATES NOS [Suspect]
     Dosage: UNK
  5. ZOLPIDEM [Suspect]
     Dosage: UNK

REACTIONS (1)
  - COMPLETED SUICIDE [None]
